FAERS Safety Report 9490487 (Version 2)
Quarter: 2013Q4

REPORT INFORMATION
  Report Type: Report from Study
  Country: JP (occurrence: JP)
  Receive Date: 20130830
  Receipt Date: 20131017
  Transmission Date: 20140711
  Serious: Yes (Hospitalization)
  Sender: FDA-Public Use
  Company Number: JP-SHIRE-ALL1-2013-05899

PATIENT
  Age: 44 Year
  Sex: Male

DRUGS (19)
  1. 405 (LANTHANUM CARBONATE) [Suspect]
     Indication: HYPERPHOSPHATAEMIA
     Dosage: 750 MG, UNKNOWN
     Route: 048
     Dates: start: 20100514, end: 20110623
  2. 405 (LANTHANUM CARBONATE) [Suspect]
     Indication: GLOMERULONEPHRITIS CHRONIC
     Dosage: 1000 MG, UNKNOWN
     Route: 048
     Dates: start: 20110624, end: 20120621
  3. FOSRENOL [Suspect]
     Indication: HYPERPHOSPHATAEMIA
     Dosage: 1000 MG, UNKNOWN
     Route: 048
     Dates: start: 20120622, end: 20121026
  4. OXAROL [Concomitant]
     Indication: PRODUCT USED FOR UNKNOWN INDICATION
     Dosage: 30 ?G, 1X/WEEK
     Route: 042
     Dates: end: 20110321
  5. OXAROL [Concomitant]
     Dosage: 10 ?G, 1X/WEEK
     Route: 042
     Dates: start: 20110323, end: 20110427
  6. OXAROL [Concomitant]
     Dosage: 10 ?G, 1X/WEEK
     Route: 042
     Dates: start: 20110325, end: 20110427
  7. OXAROL [Concomitant]
     Dosage: 15 ?G, 1X/WEEK
     Route: 042
     Dates: start: 20110430, end: 20120608
  8. OXAROL [Concomitant]
     Dosage: 5 ?G, 1X/WEEK
     Route: 042
     Dates: start: 20120613
  9. OXAROL [Concomitant]
     Dosage: 5 ?G, 1X/WEEK
     Route: 042
     Dates: start: 20120611
  10. REGPARA [Concomitant]
     Indication: HYPERPARATHYROIDISM SECONDARY
     Dosage: 25 MG, UNKNOWN
     Route: 048
     Dates: start: 20100122, end: 20130514
  11. REGPARA [Concomitant]
     Dosage: 50 MG, UNKNOWN
     Route: 048
     Dates: start: 20130515, end: 20130516
  12. REGPARA [Concomitant]
     Dosage: 25 MG, UNKNOWN
     Route: 048
     Dates: start: 20130517
  13. NICORANTA [Concomitant]
     Indication: PRODUCT USED FOR UNKNOWN INDICATION
     Dosage: 15 MG, UNKNOWN
     Route: 048
  14. ALDOMET                            /00000103/ [Concomitant]
     Indication: PRODUCT USED FOR UNKNOWN INDICATION
     Dosage: 250 MG, UNKNOWN
     Route: 048
  15. ALDOMET                            /00000103/ [Concomitant]
     Indication: HYPERTENSION
     Dosage: 750 MG, UNKNOWN
     Route: 048
     Dates: start: 20111104
  16. PARIET [Concomitant]
     Indication: PRODUCT USED FOR UNKNOWN INDICATION
     Dosage: 10 MG, UNKNOWN
     Route: 048
  17. NORVASC [Concomitant]
     Indication: PRODUCT USED FOR UNKNOWN INDICATION
     Dosage: 5 MG, UNKNOWN
     Route: 048
  18. BLOPRESS [Concomitant]
     Indication: PRODUCT USED FOR UNKNOWN INDICATION
     Dosage: 12 MG, UNKNOWN
     Route: 048
  19. SEVELAMER HYDROCHLORIDE [Concomitant]
     Indication: HYPERPHOSPHATAEMIA
     Dosage: 500 MG, UNKNOWN
     Route: 048
     Dates: start: 20110316

REACTIONS (1)
  - Melaena [Recovered/Resolved]
